FAERS Safety Report 4620489-2 (Version None)
Quarter: 2005Q1

REPORT INFORMATION
  Report Type: 
  Country: None (occurrence: None)
  Receive Date: 20050321
  Receipt Date: 20050321
  Transmission Date: 20050727
  Serious: Yes (Hospitalization)
  Sender: FDA-Public Use
  Company Number: None

PATIENT
  Age: 41 Year
  Sex: Male
  Weight: 88.4514 kg

DRUGS (4)
  1. REMICADE [Suspect]
     Indication: COLITIS ULCERATIVE
     Dosage: 440MG  ONCE   INTRAVENOU
     Route: 042
     Dates: start: 20040303, end: 20040303
  2. ASACOL [Concomitant]
  3. PREDNISONE [Concomitant]
  4. DICYCLOMINE [Concomitant]

REACTIONS (5)
  - FLUSHING [None]
  - HYPOAESTHESIA [None]
  - INFUSION RELATED REACTION [None]
  - OROPHARYNGEAL SWELLING [None]
  - PARAESTHESIA [None]
